FAERS Safety Report 7912851-7 (Version None)
Quarter: 2011Q4

REPORT INFORMATION
  Report Type: 
  Country: None (occurrence: None)
  Receive Date: 20111114
  Receipt Date: 20111107
  Transmission Date: 20120403
  Serious: Yes (Other)
  Sender: FDA-Public Use
  Company Number: JP-GLAXOSMITHKLINE-B0761888A

PATIENT
  Age: 79 Year
  Sex: Female
  Weight: 75 kg

DRUGS (4)
  1. ARIXTRA [Suspect]
     Indication: THROMBOSIS PROPHYLAXIS
     Dosage: 1.5ML PER DAY
     Route: 058
     Dates: start: 20081121
  2. HEPARIN [Suspect]
     Dosage: 20IU3 PER DAY
     Route: 042
     Dates: start: 20081128
  3. WARFARIN SODIUM [Concomitant]
     Dosage: 4MG PER DAY
     Route: 048
     Dates: start: 20081126
  4. HEPARIN [Suspect]
     Dosage: 14IU3 PER DAY
     Route: 042
     Dates: start: 20081126, end: 20081127

REACTIONS (14)
  - CARDIOMEGALY [None]
  - THROMBOSIS [None]
  - PAINFUL RESPIRATION [None]
  - SINUS TACHYCARDIA [None]
  - THERAPEUTIC RESPONSE DECREASED [None]
  - HEPARIN-INDUCED THROMBOCYTOPENIA [None]
  - PULMONARY EMBOLISM [None]
  - FACE OEDEMA [None]
  - SUPRAVENTRICULAR EXTRASYSTOLES [None]
  - ALTERED STATE OF CONSCIOUSNESS [None]
  - DYSPNOEA [None]
  - JUGULAR VEIN DISTENSION [None]
  - TRICUSPID VALVE INCOMPETENCE [None]
  - HYPOXIA [None]
